FAERS Safety Report 9983587 (Version 1)
Quarter: 2014Q1

REPORT INFORMATION
  Report Type: Report from Study
  Country: US (occurrence: US)
  Receive Date: 20140307
  Receipt Date: 20140307
  Transmission Date: 20141002
  Serious: Yes (Other)
  Sender: FDA-Public Use
  Company Number: PHEH2014US004423

PATIENT
  Sex: Female

DRUGS (5)
  1. DIOVAN [Suspect]
     Dosage: 320 MG, QD
     Route: 048
  2. ASA [Concomitant]
     Dosage: 325 MG, UNK
  3. LIPITOR [Concomitant]
     Dosage: 80 MG, UNK
  4. WATER PILLS [Concomitant]
     Dosage: UNK UKN, UNK
  5. GLIPIZIDE [Concomitant]
     Dosage: UNK UKN, UNK

REACTIONS (4)
  - Cerebrovascular accident [Unknown]
  - Headache [Unknown]
  - Tooth loss [Unknown]
  - Speech disorder [Unknown]
